FAERS Safety Report 9621163 (Version 1)
Quarter: 2013Q4

REPORT INFORMATION
  Report Type: Spontaneous
  Country: NO (occurrence: NO)
  Receive Date: 20131015
  Receipt Date: 20131015
  Transmission Date: 20140711
  Serious: Yes (Hospitalization)
  Sender: FDA-Public Use
  Company Number: NO-NOVOPROD-389364

PATIENT
  Age: 66 Year
  Sex: Male

DRUGS (2)
  1. VICTOZA [Suspect]
     Indication: DIABETES MELLITUS
     Dosage: 1.2 MG, QD
     Route: 048
     Dates: start: 20130701
  2. ATACAND PLUS [Concomitant]
     Indication: HYPERTENSION
     Dosage: PR DOSAGE FORM: 16 MG CANDESARTAN AND 12,5 MG HTZ
     Route: 048
     Dates: start: 20040304, end: 20130902

REACTIONS (1)
  - Gout [Recovering/Resolving]
